FAERS Safety Report 25815335 (Version 2)
Quarter: 2025Q3

REPORT INFORMATION
  Report Type: Spontaneous
  Country: EU (occurrence: EU)
  Receive Date: 20250918
  Receipt Date: 20250929
  Transmission Date: 20251021
  Serious: Yes (Other)
  Sender: ROCHE
  Company Number: EU-002147023-NVSC2025AT143333

PATIENT
  Age: 30 Year
  Sex: Male

DRUGS (2)
  1. XOLAIR [Suspect]
     Active Substance: OMALIZUMAB
     Indication: Chronic spontaneous urticaria
     Dosage: UNK
     Route: 058
     Dates: start: 2023
  2. ASPIRIN [Concomitant]
     Active Substance: ASPIRIN
     Indication: Cerebrovascular accident
     Route: 048

REACTIONS (5)
  - Angioedema [Unknown]
  - Pain [Unknown]
  - Drug resistance [Unknown]
  - Swelling [Unknown]
  - Therapeutic product effect decreased [Unknown]
